FAERS Safety Report 4459293-7 (Version None)
Quarter: 2004Q3

REPORT INFORMATION
  Report Type: 
  Country: None (occurrence: None)
  Receive Date: 20040924
  Receipt Date: 20040912
  Transmission Date: 20050211
  Serious: Yes (Hospitalization)
  Sender: FDA-Public Use
  Company Number: 2004065357

PATIENT
  Age: 20 Year
  Sex: Female

DRUGS (2)
  1. COOL MINT LISTERINE (EUCALYPTOL, MENTHOL, METHYL SALICYLATE, THYMOL) [Suspect]
     Dosage: ABOUT 2 CAPSULES ONCE, ORAL
     Route: 048
  2. ETHANOL (ETHANOL) [Suspect]
     Dosage: ORAL
     Route: 048
     Dates: start: 20040913, end: 20040913

REACTIONS (6)
  - ALCOHOL USE [None]
  - BALANCE DISORDER [None]
  - DEPRESSED LEVEL OF CONSCIOUSNESS [None]
  - FEELING DRUNK [None]
  - INTENTIONAL MISUSE [None]
  - MYDRIASIS [None]
